FAERS Safety Report 10957792 (Version 1)
Quarter: 2015Q1

REPORT INFORMATION
  Report Type: Spontaneous
  Country: US (occurrence: US)
  Receive Date: 20150326
  Receipt Date: 20150326
  Transmission Date: 20150721
  Serious: Yes (Hospitalization, Other)
  Sender: FDA-Public Use
  Company Number: US-CELGENE-163-CCAZA-13071799

PATIENT

DRUGS (4)
  1. AZACITIDINE INJECTABLE [Suspect]
     Active Substance: AZACITIDINE
     Indication: ACUTE MYELOID LEUKAEMIA
     Dosage: 75 MICROGRAM/SQ. METER
     Route: 041
  2. MIDOSTAURIN [Suspect]
     Active Substance: MIDOSTAURIN
     Route: 048
  3. MIDOSTAURIN [Suspect]
     Active Substance: MIDOSTAURIN
     Indication: ACUTE MYELOID LEUKAEMIA
     Route: 048
  4. MIDOSTAURIN [Suspect]
     Active Substance: MIDOSTAURIN
     Route: 048

REACTIONS (18)
  - Hepatotoxicity [Unknown]
  - Pneumonia [Unknown]
  - Thrombocytopenia [Unknown]
  - Neutropenia [Unknown]
  - Infection [Unknown]
  - Small intestinal obstruction [Unknown]
  - Diarrhoea [Unknown]
  - Pyrexia [Unknown]
  - Hypotension [Unknown]
  - Hyponatraemia [Unknown]
  - Renal disorder [Unknown]
  - Fatigue [Unknown]
  - Dehydration [Unknown]
  - Febrile neutropenia [Unknown]
  - Pain [Unknown]
  - Blood albumin abnormal [Unknown]
  - Hypoalbuminaemia [Unknown]
  - Syncope [Unknown]
